FAERS Safety Report 5634212-6 (Version None)
Quarter: 2008Q1

REPORT INFORMATION
  Report Type: 
  Country: None (occurrence: None)
  Receive Date: 20080219
  Receipt Date: 20071214
  Transmission Date: 20080703
  Serious: Yes (Life-Threatening, Hospitalization, Disabling, Other)
  Sender: FDA-Public Use
  Company Number: 2007SP018095

PATIENT
  Age: 67 Year
  Sex: Male
  Weight: 75 kg

DRUGS (12)
  1. TEMODAL [Suspect]
     Indication: GLIOSARCOMA
     Dosage: 120 MG;QD; PO; 260 MG/M2;QD; PO; 340 MG/M2;QD;PO; 340 MG/M2;QD;PO; 360 MG/M2;QD;PO; 340 MG/M2;QD;PO
     Route: 048
     Dates: start: 20070117, end: 20070305
  2. TEMODAL [Suspect]
     Indication: GLIOSARCOMA
     Dosage: 120 MG;QD; PO; 260 MG/M2;QD; PO; 340 MG/M2;QD;PO; 340 MG/M2;QD;PO; 360 MG/M2;QD;PO; 340 MG/M2;QD;PO
     Route: 048
     Dates: start: 20070409, end: 20070413
  3. TEMODAL [Suspect]
     Indication: GLIOSARCOMA
     Dosage: 120 MG;QD; PO; 260 MG/M2;QD; PO; 340 MG/M2;QD;PO; 340 MG/M2;QD;PO; 360 MG/M2;QD;PO; 340 MG/M2;QD;PO
     Route: 048
     Dates: start: 20070507, end: 20070511
  4. TEMODAL [Suspect]
     Indication: GLIOSARCOMA
     Dosage: 120 MG;QD; PO; 260 MG/M2;QD; PO; 340 MG/M2;QD;PO; 340 MG/M2;QD;PO; 360 MG/M2;QD;PO; 340 MG/M2;QD;PO
     Route: 048
     Dates: start: 20070604, end: 20070608
  5. TEMODAL [Suspect]
     Indication: GLIOSARCOMA
     Dosage: 120 MG;QD; PO; 260 MG/M2;QD; PO; 340 MG/M2;QD;PO; 340 MG/M2;QD;PO; 360 MG/M2;QD;PO; 340 MG/M2;QD;PO
     Route: 048
     Dates: start: 20070702, end: 20070706
  6. TEMODAL [Suspect]
     Indication: GLIOSARCOMA
     Dosage: 120 MG;QD; PO; 260 MG/M2;QD; PO; 340 MG/M2;QD;PO; 340 MG/M2;QD;PO; 360 MG/M2;QD;PO; 340 MG/M2;QD;PO
     Route: 048
     Dates: start: 20070730, end: 20070730
  7. PREDNISOLONE [Suspect]
     Indication: RHEUMATOID ARTHRITIS
     Dosage: 20 MG; PO
     Route: 048
     Dates: end: 20070731
  8. RHEUMATREX [Suspect]
     Indication: RHEUMATOID ARTHRITIS
     Dosage: 4 MG; PO
     Route: 048
     Dates: end: 20070501
  9. DEPAKENE-R (CON.) [Concomitant]
  10. VOLTAREN SR (CON.) [Concomitant]
  11. GASTER D (CON.) [Concomitant]
  12. MARZULENE-S (CON.) [Concomitant]

REACTIONS (16)
  - ARRHYTHMIA [None]
  - CARDIAC ARREST [None]
  - CELLULITIS [None]
  - DECREASED APPETITE [None]
  - DISSEMINATED INTRAVASCULAR COAGULATION [None]
  - EPIDERMAL NECROSIS [None]
  - HAEMODIALYSIS [None]
  - HYPOPROTEINAEMIA [None]
  - OEDEMA PERIPHERAL [None]
  - PALPITATIONS [None]
  - RENAL FAILURE [None]
  - SEPSIS [None]
  - SEPTIC SHOCK [None]
  - SUPRAVENTRICULAR TACHYCARDIA [None]
  - VENTRICULAR FIBRILLATION [None]
  - WOUND SECRETION [None]
